FAERS Safety Report 4312120-0 (Version None)
Quarter: 2004Q1

REPORT INFORMATION
  Report Type: 
  Country: None (occurrence: None)
  Receive Date: 20040303
  Receipt Date: 20040302
  Transmission Date: 20041129
  Serious: Yes (Hospitalization)
  Sender: FDA-Public Use
  Company Number: 2004-112998-NL

PATIENT
  Age: 39 Year
  Sex: Female

DRUGS (14)
  1. DANAPAROID SODIUM [Suspect]
     Indication: DISSEMINATED INTRAVASCULAR COAGULATION
     Dosage: 1250 ANTI_KA
     Route: 041
     Dates: start: 20030307, end: 20030326
  2. BETAMETHASONE [Concomitant]
  3. PREDNISOLONE [Concomitant]
  4. ETOPOSIDE [Concomitant]
  5. CYCLOPHOSPHAMIDE [Concomitant]
  6. CEFOZOFRAN HYDROCHLORIDE [Concomitant]
  7. VANCOMYCIN HYDROCHLORIDE [Concomitant]
  8. IMMUNOGLOBULIN HUMAN NORMAL [Concomitant]
  9. TIENAM [Concomitant]
  10. PAZUCROSS [Concomitant]
  11. ARBEKACIN [Concomitant]
  12. MESNA [Concomitant]
  13. FUNGUARD [Concomitant]
  14. METHYLPREDNISOLONE SODIUM SUCCINATE [Concomitant]

REACTIONS (10)
  - ACTIVATED PARTIAL THROMBOPLASTIN TIME PROLONGED [None]
  - BLOOD BILIRUBIN INCREASED [None]
  - BLOOD POTASSIUM ABNORMAL [None]
  - BONE MARROW DEPRESSION [None]
  - CATHETER SITE HAEMORRHAGE [None]
  - COAGULOPATHY [None]
  - DEHYDRATION [None]
  - FIBRIN D DIMER INCREASED [None]
  - FIBRIN DEGRADATION PRODUCTS INCREASED [None]
  - LIVER FUNCTION TEST ABNORMAL [None]
